FAERS Safety Report 4293200-5 (Version None)
Quarter: 2004Q1

REPORT INFORMATION
  Report Type: 
  Country: None (occurrence: None)
  Receive Date: 20040210
  Receipt Date: 20040129
  Transmission Date: 20041129
  Serious: Yes (Hospitalization, Other)
  Sender: FDA-Public Use
  Company Number: 2004006507

PATIENT
  Age: 58 Year
  Sex: Male
  Weight: 99.7913 kg

DRUGS (4)
  1. LIPITOR [Suspect]
     Indication: HYPERLIPIDAEMIA
     Dosage: 10 MG (DAILY) ORAL
     Route: 048
     Dates: start: 20010101, end: 20031011
  2. ACETYLSALICYLIC ACID SRT [Concomitant]
  3. IBUPROFEN [Concomitant]
  4. ROFECOXIB [Concomitant]

REACTIONS (4)
  - HAEMOGLOBIN DECREASED [None]
  - HYPERHIDROSIS [None]
  - SHOCK HAEMORRHAGIC [None]
  - TENDON RUPTURE [None]
